FAERS Safety Report 6180622-0 (Version None)
Quarter: 2009Q2

REPORT INFORMATION
  Report Type: 
  Country: None (occurrence: None)
  Receive Date: 20090506
  Receipt Date: 20090427
  Transmission Date: 20091009
  Serious: Yes (Other)
  Sender: FDA-Public Use
  Company Number: PHHY2009NO15903

PATIENT
  Sex: Female

DRUGS (2)
  1. FEMARA [Suspect]
     Indication: BREAST CANCER
     Dosage: 2.5 MG
     Dates: start: 20081029
  2. FEMARA [Suspect]
     Indication: METASTASES TO BONE

REACTIONS (2)
  - PAIN [None]
  - PARAESTHESIA [None]
